FAERS Safety Report 5187858-6 (Version None)
Quarter: 2006Q4

REPORT INFORMATION
  Report Type: 
  Country: None (occurrence: None)
  Receive Date: 20061221
  Receipt Date: 20060920
  Transmission Date: 20070319
  Serious: No
  Sender: FDA-Public Use
  Company Number: US-GLAXOSMITHKLINE-A0620876A

PATIENT
  Age: 64 Year
  Sex: Female

DRUGS (8)
  1. AVANDARYL [Suspect]
     Dosage: 1TAB PER DAY
     Route: 048
     Dates: start: 20060912
  2. GLUCOPHAGE [Concomitant]
  3. SYNTHROID [Concomitant]
  4. K-DUR 10 [Concomitant]
  5. ZANTAC [Concomitant]
  6. AVALIDE [Concomitant]
  7. FISH OIL [Concomitant]
  8. VITAMIN E [Concomitant]

REACTIONS (6)
  - BLOOD GLUCOSE DECREASED [None]
  - BLOOD GLUCOSE FLUCTUATION [None]
  - BLOOD GLUCOSE INCREASED [None]
  - FLUID RETENTION [None]
  - HEADACHE [None]
  - HYPERHIDROSIS [None]
